FAERS Safety Report 11916733 (Version 1)
Quarter: 2016Q1

REPORT INFORMATION
  Report Type: Spontaneous
  Country: US (occurrence: US)
  Receive Date: 20160114
  Receipt Date: 20160114
  Transmission Date: 20160526
  Serious: No
  Sender: FDA-Public Use
  Company Number: US-GLAXOSMITHKLINE-US2016003474

PATIENT
  Age: 21 Year

DRUGS (1)
  1. ALLI [Suspect]
     Active Substance: ORLISTAT
     Indication: WEIGHT LOSS DIET
     Dosage: UNK, TWO CAPSULES
     Dates: start: 20160105

REACTIONS (2)
  - Drug ineffective [Unknown]
  - Extra dose administered [Unknown]
